FAERS Safety Report 8332933-8 (Version None)
Quarter: 2012Q2

REPORT INFORMATION
  Report Type: 
  Country: None (occurrence: None)
  Receive Date: 20120503
  Receipt Date: 20120410
  Transmission Date: 20120825
  Serious: No
  Sender: FDA-Public Use
  Company Number: US-BAYER-2012-020521

PATIENT
  Age: 24 Year
  Sex: Female

DRUGS (1)
  1. MIRENA [Suspect]
     Dosage: UNK
     Dates: start: 20120207, end: 20120207

REACTIONS (3)
  - PROCEDURAL PAIN [None]
  - COMPLICATION OF DEVICE INSERTION [None]
  - DEVICE DIFFICULT TO USE [None]
